FAERS Safety Report 5962492-6 (Version None)
Quarter: 2008Q4

REPORT INFORMATION
  Report Type: 
  Country: None (occurrence: None)
  Receive Date: 20081121
  Receipt Date: 20081110
  Transmission Date: 20090506
  Serious: Yes (Life-Threatening, Hospitalization, Other)
  Sender: FDA-Public Use
  Company Number: PT-PFIZER INC-2008091314

PATIENT
  Age: 15 Year
  Sex: Male

DRUGS (1)
  1. PHENYTOIN [Suspect]
     Indication: EPILEPSY
     Route: 048
     Dates: start: 20081004, end: 20081019

REACTIONS (4)
  - LEUKOPENIA [None]
  - PYREXIA [None]
  - RASH [None]
  - SEPSIS [None]
